FAERS Safety Report 8201822-1 (Version None)
Quarter: 2012Q1

REPORT INFORMATION
  Report Type: 
  Country: None (occurrence: None)
  Receive Date: 20120312
  Receipt Date: 20120302
  Transmission Date: 20120608
  Serious: Yes (Hospitalization)
  Sender: FDA-Public Use
  Company Number: US-BAYER-2011-105831

PATIENT
  Age: 29 Year
  Sex: Female
  Weight: 175.96 kg

DRUGS (3)
  1. YASMIN [Suspect]
     Indication: MENSTRUAL CYCLE MANAGEMENT
     Dosage: UNK
     Dates: start: 20050401, end: 20060101
  2. OMNICEF [Concomitant]
     Dosage: 300 MG, UNK
     Route: 048
     Dates: start: 20060213
  3. IBUPROFEN [Concomitant]
     Dosage: 800 MG, EVERY 6 HRS PRN
     Route: 048
     Dates: start: 20060418

REACTIONS (8)
  - ANXIETY [None]
  - PAIN [None]
  - GENERAL PHYSICAL HEALTH DETERIORATION [None]
  - EMOTIONAL DISTRESS [None]
  - FEAR [None]
  - PULMONARY EMBOLISM [None]
  - INJURY [None]
  - ANHEDONIA [None]
